FAERS Safety Report 7180191-2 (Version None)
Quarter: 2010Q4

REPORT INFORMATION
  Report Type: 
  Country: None (occurrence: None)
  Receive Date: 20101209
  Receipt Date: 20101129
  Transmission Date: 20110411
  Serious: Yes (Other)
  Sender: FDA-Public Use
  Company Number: TPA2010A05242

PATIENT
  Age: 69 Year
  Sex: Male
  Weight: 113.8 kg

DRUGS (3)
  1. ACTOS [Suspect]
     Indication: TYPE 2 DIABETES MELLITUS
     Dosage: 15 MG, 1 IN 1 D, PER ORAL
     Route: 048
     Dates: start: 20070301, end: 20090301
  2. METFORMIN [Concomitant]
  3. ZOLOFT [Concomitant]

REACTIONS (2)
  - BLADDER TRANSITIONAL CELL CARCINOMA STAGE III [None]
  - HAEMATURIA [None]
